FAERS Safety Report 24618854 (Version 1)
Quarter: 2024Q4

REPORT INFORMATION
  Report Type: Spontaneous
  Country: US (occurrence: None)
  Receive Date: 20241113
  Receipt Date: 20241113
  Transmission Date: 20250115
  Serious: Yes (Other)
  Sender: Public
  Company Number: None

PATIENT
  Age: 4 Week
  Sex: Female
  Weight: 4.05 kg

DRUGS (2)
  1. BEYFORTUS [Suspect]
     Active Substance: NIRSEVIMAB-ALIP
     Indication: Antiviral prophylaxis
     Dosage: OTHER FREQUENCY : ONCE;?
     Route: 030
     Dates: start: 20241016, end: 20241016
  2. Beyfortus Nirsevimab [Concomitant]
     Dates: start: 20241016, end: 20241016

REACTIONS (2)
  - Haemangioma [None]
  - Injection site reaction [None]

NARRATIVE: CASE EVENT DATE: 20241016
